FAERS Safety Report 11522453 (Version 1)
Quarter: 2015Q3

REPORT INFORMATION
  Report Type: Spontaneous
  Country: FR (occurrence: FR)
  Receive Date: 20150918
  Receipt Date: 20150918
  Transmission Date: 20151125
  Serious: Yes (Hospitalization, Other)
  Sender: FDA-Public Use
  Company Number: FR-PFIZER INC-2015306118

PATIENT
  Age: 75 Year
  Sex: Female

DRUGS (8)
  1. PROCORALAN [Suspect]
     Active Substance: IVABRADINE
     Indication: CARDIOMYOPATHY
     Dosage: 5 MG, 2X/DAY
     Route: 048
     Dates: start: 20150808, end: 20150822
  2. COVERSYL /00790702/ [Suspect]
     Active Substance: PERINDOPRIL
     Indication: CARDIOMYOPATHY
     Dosage: 2.5 MG, 2X/DAY
     Route: 048
     Dates: start: 20150808, end: 20150822
  3. INEXIUM /01479302/ [Suspect]
     Active Substance: ESOMEPRAZOLE MAGNESIUM
     Dosage: UNK
     Dates: start: 20150808, end: 20150822
  4. KARDEGIC [Concomitant]
     Active Substance: ASPIRIN LYSINE
     Dosage: UNK
     Dates: start: 20150808
  5. INSPRA [Suspect]
     Active Substance: EPLERENONE
     Indication: CARDIOMYOPATHY
     Dosage: 25 MG, DAILY
     Route: 048
     Dates: start: 20150808
  6. TAHOR [Suspect]
     Active Substance: ATORVASTATIN CALCIUM
     Dosage: UNK
     Dates: start: 20150808, end: 20150822
  7. LASILIX /00032601/ [Suspect]
     Active Substance: FUROSEMIDE
     Indication: CARDIOMYOPATHY
     Dosage: 40 MG, 1X/DAY
     Route: 048
     Dates: start: 20150808
  8. ALPRAZOLAM. [Concomitant]
     Active Substance: ALPRAZOLAM

REACTIONS (3)
  - Acute kidney injury [Not Recovered/Not Resolved]
  - Diarrhoea [Unknown]
  - Cardiogenic shock [Not Recovered/Not Resolved]

NARRATIVE: CASE EVENT DATE: 201508
